FAERS Safety Report 12855096 (Version 2)
Quarter: 2017Q3

REPORT INFORMATION
  Report Type: Spontaneous
  Country: CA (occurrence: CA)
  Receive Date: 20161017
  Receipt Date: 20170705
  Transmission Date: 20171127
  Serious: Yes (Hospitalization, Other)
  Sender: FDA-Public Use
  Company Number: CA-SA-2016SA184440

PATIENT
  Age: 71 Year
  Sex: Female

DRUGS (3)
  1. FLUDARABINE PHOSPHATE. [Suspect]
     Active Substance: FLUDARABINE PHOSPHATE
     Indication: CHRONIC LYMPHOCYTIC LEUKAEMIA
     Route: 065
     Dates: start: 20130903, end: 20140224
  2. RITUXAN [Suspect]
     Active Substance: RITUXIMAB
     Indication: CHRONIC LYMPHOCYTIC LEUKAEMIA
     Dosage: FORM: SOLUTION INTRAVENOUS
     Route: 042
     Dates: start: 20130903, end: 20140224
  3. PROCYTOX [Suspect]
     Active Substance: CYCLOPHOSPHAMIDE
     Indication: CHRONIC LYMPHOCYTIC LEUKAEMIA
     Dosage: FORM: POWDER FOR SOLUTION INTRAVENOUS?200MG/VIAL
     Route: 033
     Dates: start: 20130903, end: 20140224

REACTIONS (1)
  - Therapeutic response decreased [Unknown]
